FAERS Safety Report 6763833-2 (Version None)
Quarter: 2010Q2

REPORT INFORMATION
  Report Type: 
  Country: None (occurrence: None)
  Receive Date: 20100610
  Receipt Date: 20100607
  Transmission Date: 20101027
  Serious: Yes (Hospitalization)
  Sender: FDA-Public Use
  Company Number: US-BRISTOL-MYERS SQUIBB COMPANY-15120900

PATIENT
  Age: 84 Year
  Sex: Female

DRUGS (3)
  1. GLUCOPHAGE [Suspect]
     Indication: DIABETES MELLITUS
  2. PRANDIN [Suspect]
     Indication: DIABETES MELLITUS
  3. AVANDIA [Suspect]
     Indication: DIABETES MELLITUS

REACTIONS (1)
  - HEPATIC FAILURE [None]
